FAERS Safety Report 8498491-2 (Version None)
Quarter: 2012Q3

REPORT INFORMATION
  Report Type: 
  Country: None (occurrence: None)
  Receive Date: 20120709
  Receipt Date: 20120628
  Transmission Date: 20120928
  Serious: Yes (Hospitalization)
  Sender: FDA-Public Use
  Company Number: US-ROCHE-1083671

PATIENT
  Sex: Male

DRUGS (7)
  1. ALEVE [Concomitant]
     Indication: PAIN
  2. PEGASYS [Suspect]
     Indication: HEPATITIS C
     Route: 058
     Dates: start: 20110712, end: 20120516
  3. BLINDED TMC435 (NS3/4A PROTEASE INHIBITOR) [Suspect]
     Indication: HEPATITIS C
     Dates: start: 20110712, end: 20110810
  4. ENALAPRIL MALEATE [Concomitant]
     Route: 048
  5. COPEGUS [Suspect]
     Indication: HEPATITIS C
     Route: 048
     Dates: start: 20110712, end: 20120516
  6. LOVENOX [Concomitant]
     Dosage: 0.3 ML
     Route: 058
     Dates: start: 20120615, end: 20120616
  7. PROTONIX [Concomitant]
     Route: 048
     Dates: start: 20120615

REACTIONS (3)
  - HYPERCALCAEMIA [None]
  - RENAL FAILURE ACUTE [None]
  - SARCOIDOSIS [None]
